FAERS Safety Report 17817887 (Version 2)
Quarter: 2021Q2

REPORT INFORMATION
  Report Type: Report from Study
  Country: IT (occurrence: IT)
  Receive Date: 20200522
  Receipt Date: 20210521
  Transmission Date: 20210716
  Serious: Yes (Other)
  Sender: FDA-Public Use
  Company Number: IT-MYLANLABS-2020M1050530

PATIENT
  Age: 55 Year
  Sex: Female

DRUGS (10)
  1. TRASTUZUMAB. [Suspect]
     Active Substance: TRASTUZUMAB
     Indication: BREAST CANCER
     Dosage: 640 MG, Q3W (MOST RECENT DOSE PRIOR TO THE EVENT: 26/FEB/2018)
     Route: 041
     Dates: start: 20180205
  2. PERTUZUMAB. [Suspect]
     Active Substance: PERTUZUMAB
     Indication: BREAST CANCER
     Dosage: 840 MG, Q3W (MOST RECENT DOSE PRIOR TO THE EVENT: 26/FEB/2018)
     Route: 042
     Dates: start: 20180205
  3. COLECALCIFEROL [Concomitant]
     Active Substance: CHOLECALCIFEROL
     Dosage: ONGOING = CHECKED
     Dates: start: 20180730
  4. CARDICOR [Concomitant]
     Active Substance: BISOPROLOL
     Dosage: ONGOING = CHECKED
     Dates: start: 20190111
  5. TAMOXIFEN [Suspect]
     Active Substance: TAMOXIFEN
     Indication: BREAST CANCER
     Dosage: 20 MILLIGRAM, QD (MOST RECENT DOSE ON 22/JAN/2018)
     Route: 048
     Dates: start: 20121210
  6. CHLORPHENIRAMINE MALEATE. [Concomitant]
     Active Substance: CHLORPHENIRAMINE MALEATE
     Dosage: ONGOING = NOT CHECKED
     Dates: start: 20180525, end: 20190508
  7. XARELTO [Concomitant]
     Active Substance: RIVAROXABAN
     Dosage: ONGOING = CHECKED
     Dates: start: 20190111
  8. LETROZOLE. [Suspect]
     Active Substance: LETROZOLE
     Indication: BREAST CANCER
     Dosage: 2.5 MILLIGRAM, QD
     Route: 048
     Dates: start: 20180618
  9. LANSOPRAZOLO [Concomitant]
     Active Substance: LANSOPRAZOLE
     Dosage: ONGOING = CHECKED
     Dates: start: 20180326
  10. PACLITAXEL. [Suspect]
     Active Substance: PACLITAXEL
     Indication: BREAST CANCER
     Dosage: 150 MICROGRAM, QW (MOST RECENT DOSE ON 30/APR/2018)
     Route: 042
     Dates: start: 20180205

REACTIONS (1)
  - Atrial fibrillation [Recovered/Resolved]

NARRATIVE: CASE EVENT DATE: 20190508
